FAERS Safety Report 12826879 (Version 1)
Quarter: 2016Q4

REPORT INFORMATION
  Report Type: Spontaneous
  Country: US (occurrence: US)
  Receive Date: 20161007
  Receipt Date: 20161007
  Transmission Date: 20170207
  Serious: No
  Sender: FDA-Public Use
  Company Number: US-INDIVIOR LIMITED-INDV-085233-2015

PATIENT
  Age: 28 Year
  Sex: Female

DRUGS (1)
  1. SUBOXONE [Suspect]
     Active Substance: BUPRENORPHINE HYDROCHLORIDE\NALOXONE HYDROCHLORIDE
     Indication: DRUG DEPENDENCE
     Dosage: 14 MG, DAILY BY CUTTING THE FILM FOR ABOUT 16 MONTHS
     Route: 060
     Dates: start: 201407, end: 20151103

REACTIONS (4)
  - Tooth fracture [Not Recovered/Not Resolved]
  - Oral pain [Not Recovered/Not Resolved]
  - Dental caries [Not Recovered/Not Resolved]
  - Product preparation error [Recovered/Resolved]

NARRATIVE: CASE EVENT DATE: 201407
